FAERS Safety Report 20839872 (Version 1)
Quarter: 2022Q2

REPORT INFORMATION
  Report Type: Spontaneous
  Country: CN (occurrence: CN)
  Receive Date: 20220517
  Receipt Date: 20220517
  Transmission Date: 20220720
  Serious: Yes (Other)
  Sender: FDA-Public Use
  Company Number: CN-ELI_LILLY_AND_COMPANY-CN202205003353

PATIENT
  Age: 58 Year
  Sex: Female
  Weight: 50 kg

DRUGS (3)
  1. ALIMTA [Suspect]
     Active Substance: PEMETREXED DISODIUM
     Indication: Lung adenocarcinoma
     Dosage: 200 MG, SINGLE (ONE TIME ONE DAY)
     Route: 041
     Dates: start: 20220323, end: 20220323
  2. ALIMTA [Suspect]
     Active Substance: PEMETREXED DISODIUM
     Dosage: 0.5 G, SINGLE (ONE TIME ONE DAY)
     Route: 041
     Dates: start: 20220323, end: 20220323
  3. CARBOPLATIN [Suspect]
     Active Substance: CARBOPLATIN
     Indication: Lung adenocarcinoma
     Dosage: 500 MG, SINGLE (ONE TIME ONE DAY)
     Route: 041
     Dates: start: 20220323, end: 20220323

REACTIONS (2)
  - Drug-induced liver injury [Unknown]
  - Transaminases increased [Recovering/Resolving]

NARRATIVE: CASE EVENT DATE: 20220404
